FAERS Safety Report 13894078 (Version 2)
Quarter: 2017Q4

REPORT INFORMATION
  Report Type: Report from Study
  Country: CA (occurrence: CA)
  Receive Date: 20170822
  Receipt Date: 20171016
  Transmission Date: 20180320
  Serious: Yes (Other)
  Sender: FDA-Public Use
  Company Number: CA-JNJFOC-20170816836

PATIENT
  Age: 74 Year
  Sex: Male
  Weight: 98.1 kg

DRUGS (3)
  1. REMICADE [Suspect]
     Active Substance: INFLIXIMAB
     Indication: CROHN^S DISEASE
     Route: 042
     Dates: start: 20170817
  2. REMICADE [Suspect]
     Active Substance: INFLIXIMAB
     Indication: CROHN^S DISEASE
     Dosage: STRENGTH = 100 MG
     Route: 042
     Dates: start: 20110705
  3. REMICADE [Suspect]
     Active Substance: INFLIXIMAB
     Indication: CROHN^S DISEASE
     Route: 042

REACTIONS (6)
  - Infected bite [Recovering/Resolving]
  - Skin cancer [Unknown]
  - Arthropod bite [Recovering/Resolving]
  - Rash papular [Unknown]
  - Oedema [Unknown]
  - Sensory loss [Unknown]

NARRATIVE: CASE EVENT DATE: 2012
